FAERS Safety Report 9980763 (Version 1)
Quarter: 2014Q1

REPORT INFORMATION
  Report Type: Spontaneous
  Country: US (occurrence: US)
  Receive Date: 20140307
  Receipt Date: 20140307
  Transmission Date: 20141002
  Serious: No
  Sender: FDA-Public Use
  Company Number: US-JNJFOC-20140217466

PATIENT
  Sex: Female
  Weight: 71.22 kg

DRUGS (1)
  1. INVEGA SUSTENNA [Suspect]
     Indication: SCHIZOPHRENIA
     Route: 030
     Dates: start: 201402, end: 20140224

REACTIONS (2)
  - Akathisia [Unknown]
  - Drug ineffective [Unknown]
